FAERS Safety Report 9361711 (Version 1)
Quarter: 2013Q2

REPORT INFORMATION
  Report Type: Spontaneous
  Country: RO (occurrence: RO)
  Receive Date: 20130621
  Receipt Date: 20130621
  Transmission Date: 20140414
  Serious: Yes (Other)
  Sender: FDA-Public Use
  Company Number: RO-ACTAVIS-2013-10632

PATIENT
  Age: 3 Year
  Sex: Female

DRUGS (6)
  1. CARBOPLATIN (UNKNOWN) [Suspect]
     Indication: NEPHROBLASTOMA
     Dosage: 200 MG/M2, UNKNOWN
     Route: 065
  2. CYCLOPHOSPHAMIDE (UNKNOWN) [Suspect]
     Indication: NEPHROBLASTOMA
     Dosage: 450 MG/M2, UNK
     Route: 065
  3. DOXORUBICIN (UNKNOWN) [Suspect]
     Indication: NEPHROBLASTOMA
     Dosage: 50 MG/M2, UNKNOWN
     Route: 065
  4. ETOPOSIDE (UNKNOWN) [Suspect]
     Indication: NEPHROBLASTOMA
     Dosage: 150 MG/M2, UNKNOWN
     Route: 065
  5. VINCRISTINE (UNKNOWN) [Suspect]
     Indication: NEPHROBLASTOMA
     Dosage: UNKNOWN
     Route: 065
  6. ACTINOMYCIN D [Suspect]
     Indication: NEPHROBLASTOMA
     Dosage: UNKNOWN
     Route: 065

REACTIONS (3)
  - Bone marrow failure [Unknown]
  - Neutropenia [Unknown]
  - Dyspepsia [Unknown]
